FAERS Safety Report 6942697-8 (Version None)
Quarter: 2010Q3

REPORT INFORMATION
  Report Type: 
  Country: None (occurrence: None)
  Receive Date: 20100823
  Receipt Date: 20100812
  Transmission Date: 20110219
  Serious: Yes (Hospitalization)
  Sender: FDA-Public Use
  Company Number: AUR-APL-2010-02029

PATIENT
  Age: 63 Year
  Sex: Female
  Weight: 147.8 kg

DRUGS (12)
  1. PERINDOPRIL ERBUMINE [Suspect]
     Indication: HYPERTENSION
     Dosage: 4MG, DAILY, ORAL
     Route: 048
     Dates: end: 20100418
  2. ASPIRIN [Concomitant]
  3. BISOPROLOL FUMARATE [Concomitant]
  4. DIGOXIN [Concomitant]
  5. FUROSEMIDE [Concomitant]
  6. GABAPENTIN [Concomitant]
  7. ACETAMINOPHEN [Concomitant]
  8. PRAMIPEXOLE DIHYDROCHLORIDE MONOHYDRATE [Concomitant]
  9. RAMIPRIL [Concomitant]
  10. ROTIGOTINE [Concomitant]
  11. TEMAZEPAM [Concomitant]
  12. TRAMADOL HCL [Concomitant]

REACTIONS (5)
  - DYSPNOEA [None]
  - FLUID RETENTION [None]
  - LETHARGY [None]
  - MALAISE [None]
  - RENAL FAILURE [None]
